FAERS Safety Report 18107002 (Version 7)
Quarter: 2024Q2

REPORT INFORMATION
  Report Type: Spontaneous
  Country: US (occurrence: US)
  Receive Date: 20200803
  Receipt Date: 20240620
  Transmission Date: 20240716
  Serious: Yes (Other)
  Sender: FDA-Public Use
  Company Number: US-PFIZER INC-2020293585

PATIENT
  Age: 64 Year
  Sex: Female
  Weight: 98.88 kg

DRUGS (4)
  1. IBRANCE [Suspect]
     Active Substance: PALBOCICLIB
     Indication: Breast cancer metastatic
     Dosage: 125 MG, CYCLIC (ONCE A DAY X21 DAYS Q 28 DAYS)
     Route: 048
     Dates: start: 20190828
  2. IBRANCE [Suspect]
     Active Substance: PALBOCICLIB
     Dosage: 125MG 1 TABLET A DAY BY MOUTH FOR 21 DAYS THEN 7 DAYS OFF.
     Route: 048
  3. FASLODEX [Concomitant]
     Active Substance: FULVESTRANT
     Dosage: UNK
  4. XGEVA [Concomitant]
     Active Substance: DENOSUMAB
     Dosage: UNK

REACTIONS (6)
  - Thrombosis [Unknown]
  - Cough [Unknown]
  - Dry skin [Unknown]
  - Dyspnoea [Unknown]
  - White blood cell count decreased [Unknown]
  - Bone disorder [Unknown]

NARRATIVE: CASE EVENT DATE: 20200801
